FAERS Safety Report 9485839 (Version 15)
Quarter: 2017Q4

REPORT INFORMATION
  Report Type: Report from Study
  Country: CA (occurrence: CA)
  Receive Date: 20130829
  Receipt Date: 20171101
  Transmission Date: 20180321
  Serious: Yes (Hospitalization, Other)
  Sender: FDA-Public Use
  Company Number: PHHY2013CA093109

PATIENT
  Age: 58 Year
  Sex: Male

DRUGS (10)
  1. SANDOSTATIN LAR DEPOT [Suspect]
     Active Substance: OCTREOTIDE ACETATE
     Dosage: 30 MG, EVERY 3 WEEKS
     Route: 030
     Dates: start: 20150319
  2. NOVO-DILTAZEM [Concomitant]
     Indication: PRODUCT USED FOR UNKNOWN INDICATION
     Dosage: UNK
     Route: 065
  3. QUININE-ODAN [Concomitant]
     Active Substance: QUININE SULFATE
     Indication: PRODUCT USED FOR UNKNOWN INDICATION
     Route: 065
  4. SANDOSTATIN LAR DEPOT [Suspect]
     Active Substance: OCTREOTIDE ACETATE
     Dosage: 30 MG, QMO (EVERY 4 WEEKS)
     Route: 030
  5. FLOMAX//MORNIFLUMATE [Concomitant]
     Active Substance: MORNIFLUMATE
     Indication: PRODUCT USED FOR UNKNOWN INDICATION
     Route: 065
  6. SANDOSTATIN LAR DEPOT [Suspect]
     Active Substance: OCTREOTIDE ACETATE
     Dosage: 20 MG, QMO
     Route: 030
  7. SANDOSTATIN [Suspect]
     Active Substance: OCTREOTIDE ACETATE
     Indication: DIARRHOEA
     Dosage: TID (UNTILL SANDOSTATIN LAR GIVEN)
     Route: 058
     Dates: start: 201101, end: 2011
  8. SANDOSTATIN LAR DEPOT [Suspect]
     Active Substance: OCTREOTIDE ACETATE
     Indication: DIARRHOEA
     Dosage: 10 MG, QMO
     Route: 030
     Dates: start: 20110324
  9. AVALIDE [Concomitant]
     Active Substance: HYDROCHLOROTHIAZIDE\IRBESARTAN
     Indication: PRODUCT USED FOR UNKNOWN INDICATION
     Route: 065
  10. SANDOSTATIN LAR DEPOT [Suspect]
     Active Substance: OCTREOTIDE ACETATE
     Dosage: 30 MG, QMO (ONCE A MONTH)
     Route: 030

REACTIONS (15)
  - Intestinal obstruction [Unknown]
  - Blood sodium decreased [Unknown]
  - Foot deformity [Unknown]
  - Localised infection [Unknown]
  - Ischaemia [Recovering/Resolving]
  - Blood pressure systolic increased [Unknown]
  - Fall [Unknown]
  - Incorrect dose administered [Unknown]
  - Needle issue [Unknown]
  - Product use in unapproved indication [Unknown]
  - Myocardial infarction [Unknown]
  - Erythema [Unknown]
  - Pain [Unknown]
  - Arterial occlusive disease [Unknown]
  - Inflammation [Unknown]

NARRATIVE: CASE EVENT DATE: 201101
